FAERS Safety Report 7220754-9 (Version None)
Quarter: 2011Q1

REPORT INFORMATION
  Report Type: 
  Country: None (occurrence: None)
  Receive Date: 20110111
  Receipt Date: 20101231
  Transmission Date: 20110831
  Serious: Yes (Death)
  Sender: FDA-Public Use
  Company Number: US-PFIZER INC-2011002668

PATIENT
  Age: 29 Year
  Sex: Female

DRUGS (4)
  1. METHOTREXATE SODIUM [Suspect]
  2. FOLIC ACID [Suspect]
  3. HYDROXYCHLOROQUINE [Suspect]
  4. PREDNISONE [Suspect]

REACTIONS (1)
  - COMPLETED SUICIDE [None]
